FAERS Safety Report 6504330-9 (Version None)
Quarter: 2009Q4

REPORT INFORMATION
  Report Type: 
  Country: None (occurrence: None)
  Receive Date: 20091217
  Receipt Date: 20091208
  Transmission Date: 20100525
  Serious: Yes (Life-Threatening, Hospitalization, Other)
  Sender: FDA-Public Use
  Company Number: US-WATSON-2009-10520

PATIENT

DRUGS (1)
  1. FENTANYL-100 [Suspect]
     Indication: LIMB INJURY
     Dosage: UNK
     Route: 062

REACTIONS (5)
  - DRUG INEFFECTIVE [None]
  - DRY SKIN [None]
  - GALLBLADDER DISORDER [None]
  - GANGRENE [None]
  - NERVE BLOCK [None]
